FAERS Safety Report 6468374-8 (Version None)
Quarter: 2009Q4

REPORT INFORMATION
  Report Type: 
  Country: None (occurrence: None)
  Receive Date: 20091203
  Receipt Date: 20091125
  Transmission Date: 20100525
  Serious: Yes (Hospitalization, Other)
  Sender: FDA-Public Use
  Company Number: PL-BIOGENIDEC-2009BI032977

PATIENT
  Age: 35 Year
  Sex: Female

DRUGS (3)
  1. TYSABRI [Suspect]
     Indication: MULTIPLE SCLEROSIS
     Route: 042
     Dates: start: 20090624, end: 20090901
  2. BACLOFEN [Concomitant]
     Indication: MUSCLE SPASTICITY
  3. SIRDALUD [Concomitant]
     Indication: MUSCLE SPASTICITY

REACTIONS (17)
  - CONSCIOUSNESS FLUCTUATING [None]
  - DIPLEGIA [None]
  - DIPLOPIA [None]
  - ELECTROENCEPHALOGRAM ABNORMAL [None]
  - EXTENSOR PLANTAR RESPONSE [None]
  - FACIAL PALSY [None]
  - HEADACHE [None]
  - MULTIPLE SCLEROSIS [None]
  - MUSCLE SPASTICITY [None]
  - NUCLEAR MAGNETIC RESONANCE IMAGING ABNORMAL [None]
  - NYSTAGMUS [None]
  - PARESIS [None]
  - PROGRESSIVE MULTIFOCAL LEUKOENCEPHALOPATHY [None]
  - SOMNOLENCE [None]
  - VERTIGO [None]
  - VISUAL ACUITY REDUCED [None]
  - VOMITING [None]
